FAERS Safety Report 9838515 (Version 1)
Quarter: 2013Q4

REPORT INFORMATION
  Report Type: Spontaneous
  Country: US (occurrence: None)
  Receive Date: 20131206
  Receipt Date: 20131206
  Transmission Date: 20140711
  Serious: Yes (Other)
  Sender: FDA-Public Use
  Company Number: 376820

PATIENT
  Sex: Male

DRUGS (1)
  1. NOVOLOG FLEX PEN [Suspect]
     Indication: DIABETES MELLITUS
     Route: 058

REACTIONS (3)
  - Device malfunction [None]
  - Incorrect dose administered by device [None]
  - Hypoglycaemic unconsciousness [None]
